FAERS Safety Report 4841431-5 (Version None)
Quarter: 2005Q4

REPORT INFORMATION
  Report Type: 
  Country: None (occurrence: None)
  Receive Date: 20051130
  Receipt Date: 20041029
  Transmission Date: 20060501
  Serious: No
  Sender: FDA-Public Use
  Company Number: US-GLAXOSMITHKLINE-A0531851A

PATIENT
  Age: 35 Year
  Sex: Female

DRUGS (6)
  1. WELLBUTRIN XL [Suspect]
     Indication: DEPRESSION
     Dosage: 30MG PER DAY
     Route: 048
  2. PREDNISONE [Concomitant]
  3. AMITRIPTYLINE HCL [Concomitant]
  4. NEXIUM [Concomitant]
  5. SINGULAIR [Concomitant]
  6. AMOXICILLIN [Concomitant]

REACTIONS (6)
  - ANXIETY [None]
  - ASTHENIA [None]
  - CRYING [None]
  - FEELING JITTERY [None]
  - STRESS [None]
  - TREMOR [None]
